FAERS Safety Report 19287442 (Version 1)
Quarter: 2021Q2

REPORT INFORMATION
  Report Type: Spontaneous
  Country: JP (occurrence: JP)
  Receive Date: 20210521
  Receipt Date: 20210521
  Transmission Date: 20210717
  Serious: Yes (Hospitalization, Other)
  Sender: FDA-Public Use
  Company Number: JP-ORGANON-O2105JPN000207J

PATIENT
  Age: 73 Year
  Sex: Female

DRUGS (2)
  1. DESALEX TABLETS 5MG [Suspect]
     Active Substance: DESLORATADINE
     Indication: RHINITIS ALLERGIC
     Dosage: 5 MILLIGRAM, QD
     Route: 048
     Dates: start: 20201219, end: 20210406
  2. SAIBOKUTO [Suspect]
     Active Substance: HERBALS
     Dosage: 7.5 GRAM, BID
     Route: 065
     Dates: start: 20201219, end: 20210406

REACTIONS (3)
  - Drug-induced liver injury [Recovered/Resolved]
  - Diverticulum intestinal [Unknown]
  - Pancreatic cyst [Unknown]

NARRATIVE: CASE EVENT DATE: 20210406
